FAERS Safety Report 8812343 (Version 1)
Quarter: 2012Q4

REPORT INFORMATION
  Report Type: 
  Country: US (occurrence: US)
  Receive Date: 20120927
  Receipt Date: 20120927
  Transmission Date: 20130627
  Serious: No
  Sender: FDA-Public Use
  Company Number: US-PFIZER INC-2012239182

PATIENT
  Age: 78 Year
  Sex: Female
  Weight: 53.9 kg

DRUGS (1)
  1. NORVASC [Suspect]
     Indication: HYPERTENSION
     Dosage: 10 mg, daily
     Dates: end: 201209

REACTIONS (2)
  - Asthenia [Unknown]
  - Feeling abnormal [Unknown]
